FAERS Safety Report 16122131 (Version 2)
Quarter: 2020Q1

REPORT INFORMATION
  Report Type: Spontaneous
  Country: US (occurrence: US)
  Receive Date: 20190327
  Receipt Date: 20200117
  Transmission Date: 20200409
  Serious: Yes (Other)
  Sender: FDA-Public Use
  Company Number: US-PFIZER INC-2019129941

PATIENT
  Age: 67 Year
  Sex: Female
  Weight: 77.98 kg

DRUGS (2)
  1. IBRANCE [Suspect]
     Active Substance: PALBOCICLIB
     Dosage: 75 MG, CYCLIC  (X 21 DAYS, 7 DAYS OFF)
     Route: 048
     Dates: end: 202001
  2. IBRANCE [Suspect]
     Active Substance: PALBOCICLIB
     Indication: BREAST CANCER METASTATIC
     Dosage: 100 MG, CYCLIC (DAILY X 21 DAYS, 7 DAYS OFF)
     Route: 048
     Dates: start: 20180605

REACTIONS (3)
  - Neutropenia [Unknown]
  - Renal function test abnormal [Unknown]
  - Neoplasm progression [Unknown]
